FAERS Safety Report 4868657-9 (Version None)
Quarter: 2005Q4

REPORT INFORMATION
  Report Type: 
  Country: None (occurrence: None)
  Receive Date: 20051223
  Receipt Date: 20051214
  Transmission Date: 20060501
  Serious: Yes (Hospitalization, Other)
  Sender: FDA-Public Use
  Company Number: 2005145691

PATIENT
  Age: 58 Year
  Sex: Female

DRUGS (11)
  1. LYRICA [Suspect]
     Indication: SHOULDER PAIN
     Dosage: 150 MG (50 MG, 3 IN 1 D), ORAL
     Route: 048
     Dates: start: 20051011, end: 20051017
  2. ALCOHOL (ETHANOL) [Suspect]
     Indication: ILL-DEFINED DISORDER
  3. ACETAMINOPHEN [Suspect]
     Indication: ILL-DEFINED DISORDER
  4. DEXTROMETHORPHAN HYDROBROMIDE [Suspect]
     Indication: ILL-DEFINED DISORDER
  5. CHLORAL HYDRATE (CHLORAL HYDRATE) [Suspect]
     Indication: ILL-DEFINED DISORDER
  6. PERCOCET [Suspect]
     Indication: ILL-DEFINED DISORDER
  7. HYDROCODONE BITARTRATE + ACETAMINOPHEN [Concomitant]
  8. CEPHALEXIN [Concomitant]
  9. SYNTHROID [Concomitant]
  10. AMBIEN [Concomitant]
  11. KLONOPIN [Concomitant]

REACTIONS (12)
  - ALANINE AMINOTRANSFERASE INCREASED [None]
  - ASPARTATE AMINOTRANSFERASE INCREASED [None]
  - BLOOD CREATINE PHOSPHOKINASE INCREASED [None]
  - BLOOD POTASSIUM INCREASED [None]
  - BLOOD SODIUM DECREASED [None]
  - CONFUSIONAL STATE [None]
  - DELIRIUM [None]
  - DISORIENTATION [None]
  - MULTIPLE DRUG OVERDOSE [None]
  - POLYSUBSTANCE DEPENDENCE [None]
  - PSYCHOTIC DISORDER [None]
  - SLEEP WALKING [None]
